FAERS Safety Report 6191274-8 (Version None)
Quarter: 2009Q2

REPORT INFORMATION
  Report Type: 
  Country: None (occurrence: None)
  Receive Date: 20090513
  Receipt Date: 20090513
  Transmission Date: 20091009
  Serious: Yes (Life-Threatening, Hospitalization, Disabling)
  Sender: FDA-Public Use
  Company Number: None

PATIENT
  Age: 74 Year
  Sex: Female
  Weight: 62.5964 kg

DRUGS (1)
  1. HYDROCHLOROTHIAZIDE [Suspect]
     Indication: BLOOD PRESSURE INCREASED
     Dosage: 1/2 OF 25 MG 1X PER DAY ORALLY
     Route: 048
     Dates: start: 20050101, end: 20090129

REACTIONS (8)
  - ANKLE FRACTURE [None]
  - ARTHRALGIA [None]
  - BLOOD PRESSURE DIASTOLIC DECREASED [None]
  - DIZZINESS [None]
  - DYSPHAGIA [None]
  - SKELETAL INJURY [None]
  - SYNCOPE [None]
  - WEIGHT DECREASED [None]
